FAERS Safety Report 4456455-X (Version None)
Quarter: 2004Q3

REPORT INFORMATION
  Report Type: 
  Country: None (occurrence: None)
  Receive Date: 20040830
  Receipt Date: 20040629
  Transmission Date: 20050211
  Serious: No
  Sender: FDA-Public Use
  Company Number: 206676

PATIENT
  Age: 52 Year
  Sex: Female
  Weight: 68 kg

DRUGS (11)
  1. XOLAIR [Suspect]
     Indication: ASTHMA
     Dosage: 375 MG, Q2W, SUBCUTANEOUS
     Route: 058
     Dates: start: 20040122
  2. PREDNISONE [Concomitant]
  3. THEO-DUR [Concomitant]
  4. ALLEGRA [Concomitant]
  5. AVANDIA [Concomitant]
  6. ADVAIR (SALMETEROL XINAFOATE, FLUTICASONE PROPIONATE) [Concomitant]
  7. ZOCOR [Concomitant]
  8. PREVACID [Concomitant]
  9. FLONASE [Concomitant]
  10. SINGULAIR [Concomitant]
  11. THIAZIDE (THIAZIDE DIURETICS NOS) [Concomitant]

REACTIONS (2)
  - EYE SWELLING [None]
  - PHOTOSENSITIVITY REACTION [None]
